FAERS Safety Report 17014282 (Version 1)
Quarter: 2019Q4

REPORT INFORMATION
  Report Type: Spontaneous
  Country: US (occurrence: US)
  Receive Date: 20191111
  Receipt Date: 20191111
  Transmission Date: 20200122
  Serious: No
  Sender: FDA-Public Use
  Company Number: US-STRIDES ARCOLAB LIMITED-2019SP005580

PATIENT
  Sex: Female

DRUGS (3)
  1. MYCOPHENOLATE MOFETIL. [Suspect]
     Active Substance: MYCOPHENOLATE MOFETIL
     Indication: LUPUS NEPHRITIS
     Dosage: 380 MG, BID
     Route: 048
     Dates: start: 200809, end: 201905
  2. PLAQUENIL                          /00072602/ [Suspect]
     Active Substance: HYDROXYCHLOROQUINE DIPHOSPHATE
     Indication: LUPUS NEPHRITIS
     Dosage: 20 MG DAILY
     Route: 065
     Dates: start: 201701
  3. LOSARTAN. [Suspect]
     Active Substance: LOSARTAN
     Indication: PROTEINURIA
     Dosage: 25 MG DAILY
     Route: 065
     Dates: start: 201809, end: 20190611

REACTIONS (2)
  - Off label use [Unknown]
  - Exposure during pregnancy [Unknown]
